FAERS Safety Report 7334572-4 (Version None)
Quarter: 2011Q1

REPORT INFORMATION
  Report Type: 
  Country: None (occurrence: None)
  Receive Date: 20110307
  Receipt Date: 20100824
  Transmission Date: 20110831
  Serious: No
  Sender: FDA-Public Use
  Company Number: A0878557A

PATIENT
  Age: 52 Year
  Sex: Female

DRUGS (1)
  1. REQUIP [Suspect]
     Indication: RESTLESS LEGS SYNDROME
     Dosage: 1MG PER DAY
     Route: 065

REACTIONS (3)
  - NAUSEA [None]
  - DRUG INTOLERANCE [None]
  - DRUG INEFFECTIVE [None]
